FAERS Safety Report 9733591 (Version 1)
Quarter: 2013Q4

REPORT INFORMATION
  Report Type: Spontaneous
  Country: US (occurrence: US)
  Receive Date: 20131205
  Receipt Date: 20131205
  Transmission Date: 20140711
  Serious: Yes (Other)
  Sender: FDA-Public Use
  Company Number: US-GLAXOSMITHKLINE-A1052298A

PATIENT
  Age: 50 Year
  Sex: Male

DRUGS (1)
  1. MEPRON [Suspect]
     Indication: PRODUCT USED FOR UNKNOWN INDICATION
     Dosage: 750MG UNKNOWN
     Route: 065

REACTIONS (3)
  - Disability [Unknown]
  - Malaise [Unknown]
  - Speech disorder [Not Recovered/Not Resolved]
